FAERS Safety Report 4478441-6 (Version None)
Quarter: 2004Q4

REPORT INFORMATION
  Report Type: 
  Country: None (occurrence: None)
  Receive Date: 20041019
  Receipt Date: 20040827
  Transmission Date: 20050328
  Serious: Yes (Other)
  Sender: FDA-Public Use
  Company Number: PHEH2004US09397

PATIENT
  Age: 53 Year
  Sex: Female
  Weight: 71 kg

DRUGS (37)
  1. DIOVAN HCT [Suspect]
     Indication: HYPERTENSION
     Dosage: 1 DF, QD
     Route: 048
     Dates: start: 20040316
  2. DIOVAN HCT [Suspect]
     Dosage: 1 DF, BID
     Route: 048
     Dates: end: 20040813
  3. REQUIP [Concomitant]
  4. QVAR 40 [Concomitant]
  5. AMITRIPTYLINE HCL [Concomitant]
  6. SONATA [Concomitant]
  7. BIDEX [Concomitant]
  8. CLONIDINE HCL [Concomitant]
  9. PREMARIN [Concomitant]
  10. POTASSIUM [Concomitant]
  11. SYNTHROID [Concomitant]
  12. NEURONTIN [Concomitant]
  13. ARAVA [Concomitant]
  14. ZYRTEC [Concomitant]
  15. CELEXA [Concomitant]
  16. MIRALAX [Concomitant]
  17. PRILOSEC [Concomitant]
  18. CALCIUM [Concomitant]
  19. VITAMIN D [Concomitant]
  20. OCUVITE [Concomitant]
     Route: 048
     Dates: start: 20040601, end: 20040813
  21. DYNACIRC CR [Suspect]
     Route: 048
     Dates: start: 20040414, end: 20040813
  22. REQUIP [Concomitant]
  23. CYCLOSPORINE/ RESTASIS [Concomitant]
     Route: 047
  24. THALOMID [Concomitant]
  25. ASTELIN [Concomitant]
  26. RHINOCORT [Concomitant]
  27. OSCAL 500-D [Concomitant]
  28. ULTRACET [Concomitant]
  29. AZMACORT [Concomitant]
  30. PHENERGAN [Concomitant]
  31. CLONIDINE HCL [Concomitant]
  32. NYSTOP [Concomitant]
  33. RESTORIL [Concomitant]
  34. COREG [Concomitant]
  35. ZAROXOLYNE [Concomitant]
  36. FENEBIN [Concomitant]
  37. DEMADEX [Concomitant]

REACTIONS (4)
  - BLOOD PRESSURE INCREASED [None]
  - CONVULSION [None]
  - LOWER LIMB FRACTURE [None]
  - TREMOR [None]
